FAERS Safety Report 12457754 (Version 1)
Quarter: 2016Q2

REPORT INFORMATION
  Report Type: Spontaneous
  Country: FR (occurrence: FR)
  Receive Date: 20160611
  Receipt Date: 20160611
  Transmission Date: 20160815
  Serious: Yes (Hospitalization)
  Sender: FDA-Public Use
  Company Number: FR-ACCORD-041520

PATIENT
  Age: 55 Year
  Sex: Male

DRUGS (12)
  1. TRANXENE T-TAB [Concomitant]
     Active Substance: CLORAZEPATE DIPOTASSIUM
  2. STAGID [Concomitant]
     Active Substance: METFORMIN PAMOATE
  3. GEMCITABINE [Suspect]
     Active Substance: GEMCITABINE\GEMCITABINE HYDROCHLORIDE
     Indication: BLADDER CANCER
     Route: 042
     Dates: start: 20150929, end: 20151007
  4. PAROXETINE. [Concomitant]
     Active Substance: PAROXETINE
  5. ZOLPIDEM [Concomitant]
     Active Substance: ZOLPIDEM\ZOLPIDEM TARTRATE
  6. THERALENE [Concomitant]
     Active Substance: TRIMEPRAZINE
  7. PRAVASTATIN [Concomitant]
     Active Substance: PRAVASTATIN\PRAVASTATIN SODIUM
  8. KARDEGIC [Concomitant]
     Active Substance: ASPIRIN LYSINE
  9. DAFALGAN CODEINE [Concomitant]
     Active Substance: ACETAMINOPHEN\CODEINE PHOSPHATE
  10. CISPLATIN ACCORD [Suspect]
     Active Substance: CISPLATIN
     Indication: BLADDER CANCER
     Dosage: STRENGTH: 1 MG/ML
     Route: 042
     Dates: start: 20150929, end: 20150929
  11. XANAX [Concomitant]
     Active Substance: ALPRAZOLAM
  12. OMEPRAZOLE. [Concomitant]
     Active Substance: OMEPRAZOLE

REACTIONS (4)
  - Leukopenia [Recovered/Resolved]
  - Vasculitis [Recovered/Resolved]
  - Thrombocytopenia [Recovered/Resolved]
  - Neutropenia [Recovered/Resolved]

NARRATIVE: CASE EVENT DATE: 20151010
